FAERS Safety Report 10250210 (Version 4)
Quarter: 2015Q2

REPORT INFORMATION
  Report Type: Report from Study
  Country: AU (occurrence: AU)
  Receive Date: 20140620
  Receipt Date: 20150527
  Transmission Date: 20150821
  Serious: Yes (Other)
  Sender: FDA-Public Use
  Company Number: PHHY2014AU073681

PATIENT
  Age: 37 Year
  Sex: Male

DRUGS (11)
  1. BENZOTROPINE [Concomitant]
     Active Substance: BENZTROPINE
     Indication: PRODUCT USED FOR UNKNOWN INDICATION
     Dosage: 1 MG, NIGHT
     Route: 048
     Dates: start: 20140611
  2. CLOZARIL [Suspect]
     Active Substance: CLOZAPINE
     Indication: PRODUCT USED FOR UNKNOWN INDICATION
     Dosage: 350 MG, QD
     Route: 065
     Dates: start: 20090821
  3. BENZOTROPINE [Concomitant]
     Active Substance: BENZTROPINE
     Dosage: 2 MG, MORNING
     Route: 048
     Dates: start: 20140612
  4. DIAZEPAM. [Concomitant]
     Active Substance: DIAZEPAM
     Indication: PRODUCT USED FOR UNKNOWN INDICATION
     Dosage: 10 MG, MORNING
     Route: 048
     Dates: start: 20140605
  5. DICLOXACILLIN [Concomitant]
     Active Substance: DICLOXACILLIN
     Indication: PRODUCT USED FOR UNKNOWN INDICATION
     Dosage: 500 MG, QID
     Route: 048
     Dates: start: 20140605
  6. SERETIDE [Concomitant]
     Active Substance: FLUTICASONE FUROATE\SALMETEROL XINAFOATE
     Indication: PRODUCT USED FOR UNKNOWN INDICATION
     Dosage: UNK UNK, BID
     Route: 055
     Dates: start: 20140612
  7. OLANZAPINE. [Concomitant]
     Active Substance: OLANZAPINE
     Indication: PRODUCT USED FOR UNKNOWN INDICATION
     Dosage: 10 MG, BID
     Route: 048
     Dates: start: 20140612
  8. CLOZARIL [Suspect]
     Active Substance: CLOZAPINE
     Dosage: 75 MG, QD
     Route: 065
     Dates: start: 20090905, end: 20091007
  9. WARFARIN [Concomitant]
     Active Substance: WARFARIN
     Indication: PRODUCT USED FOR UNKNOWN INDICATION
     Dosage: 1600 OT, UNK
     Route: 065
  10. ZUCLOPENTHIXOL [Concomitant]
     Active Substance: ZUCLOPENTHIXOL
     Indication: PRODUCT USED FOR UNKNOWN INDICATION
     Dosage: 350 MG, UNK
     Route: 030
     Dates: start: 20140612
  11. CITALOPRAM [Concomitant]
     Active Substance: CITALOPRAM HYDROBROMIDE
     Indication: PRODUCT USED FOR UNKNOWN INDICATION
     Dosage: 30 MG, MORNING
     Route: 048
     Dates: start: 20140612

REACTIONS (14)
  - Mental impairment [Recovering/Resolving]
  - Myocardial ischaemia [Unknown]
  - Alanine aminotransferase increased [Unknown]
  - Persecutory delusion [Unknown]
  - Abnormal behaviour [Unknown]
  - Myocarditis [Unknown]
  - Pulmonary valve incompetence [Unknown]
  - Angina pectoris [Unknown]
  - Dyspnoea [Unknown]
  - Toothache [Unknown]
  - Palpitations [Unknown]
  - Drug ineffective [Unknown]
  - Self injurious behaviour [Unknown]
  - Chest pain [Unknown]

NARRATIVE: CASE EVENT DATE: 20090909
